FAERS Safety Report 4956782-3 (Version None)
Quarter: 2006Q1

REPORT INFORMATION
  Report Type: 
  Country: None (occurrence: None)
  Receive Date: 20060329
  Receipt Date: 20020131
  Transmission Date: 20060701
  Serious: Yes (Hospitalization)
  Sender: FDA-Public Use
  Company Number: JP-ROCHE-306108

PATIENT
  Age: 30 Year
  Sex: Male

DRUGS (13)
  1. MYCOPHENOLATE MOFETIL [Suspect]
     Route: 048
     Dates: start: 20020112, end: 20020128
  2. NEORAL [Suspect]
     Route: 048
     Dates: start: 20020112
  3. GASTER (JAPAN) [Suspect]
     Indication: DRUG USE FOR UNKNOWN INDICATION
     Route: 048
     Dates: start: 20020109, end: 20020128
  4. PREDONINE [Suspect]
     Route: 048
     Dates: start: 20020117
  5. PREDONINE [Suspect]
     Route: 042
     Dates: start: 20020110, end: 20020116
  6. ANTIBIOTICS [Suspect]
     Indication: DRUG USE FOR UNKNOWN INDICATION
     Route: 065
  7. SOLU-MEDROL [Concomitant]
     Route: 041
     Dates: start: 20020109, end: 20020109
  8. SANDIMMUNE [Concomitant]
     Route: 042
     Dates: start: 20020109, end: 20020111
  9. KALIMATE [Concomitant]
     Route: 048
     Dates: start: 20020118, end: 20020120
  10. ALLOID [Concomitant]
     Route: 048
     Dates: start: 20020112, end: 20020116
  11. PENTCILLIN [Concomitant]
     Route: 042
     Dates: start: 20020109, end: 20020116
  12. FLUMARIN [Concomitant]
     Route: 042
     Dates: start: 20020118, end: 20020125
  13. CEFMETAZON [Concomitant]
     Route: 042
     Dates: start: 20020126, end: 20020131

REACTIONS (2)
  - CYTOMEGALOVIRUS VIRAEMIA [None]
  - PANCYTOPENIA [None]
